FAERS Safety Report 7090418-3 (Version None)
Quarter: 2010Q4

REPORT INFORMATION
  Report Type: 
  Country: None (occurrence: None)
  Receive Date: 20101109
  Receipt Date: 20101028
  Transmission Date: 20110411
  Serious: Yes (Other)
  Sender: FDA-Public Use
  Company Number: US-BAYER-201014713NA

PATIENT
  Age: 24 Year
  Sex: Female
  Weight: 71 kg

DRUGS (2)
  1. MIRENA [Suspect]
     Indication: ENDOMETRIOSIS
     Dosage: MIRENA INSERTED AT TIME OF D+C FOR HEAVY BLEEDING
     Route: 015
     Dates: start: 20090410
  2. DEPO-PROVERA [Concomitant]
     Route: 030

REACTIONS (3)
  - DEVICE DISLOCATION [None]
  - SPINAL FRACTURE [None]
  - TRAUMATIC FRACTURE [None]
